FAERS Safety Report 5017977-6 (Version None)
Quarter: 2006Q2

REPORT INFORMATION
  Report Type: 
  Country: None (occurrence: None)
  Receive Date: 20060605
  Receipt Date: 20060529
  Transmission Date: 20061013
  Serious: Yes (Hospitalization)
  Sender: FDA-Public Use
  Company Number: FR-GLAXOSMITHKLINE-B0425672A

PATIENT
  Age: 77 Year
  Sex: Male

DRUGS (1)
  1. ZELITREX [Suspect]
     Indication: HERPES ZOSTER
     Dosage: 6UNIT PER DAY
     Route: 048
     Dates: start: 20060420, end: 20060420

REACTIONS (7)
  - APHASIA [None]
  - CONFUSIONAL STATE [None]
  - DISORIENTATION [None]
  - FALL [None]
  - HYPOREFLEXIA [None]
  - MIOSIS [None]
  - OVERDOSE [None]
